FAERS Safety Report 9462142 (Version 1)
Quarter: 2013Q3

REPORT INFORMATION
  Report Type: Spontaneous
  Country: US (occurrence: None)
  Receive Date: 20130815
  Receipt Date: 20130815
  Transmission Date: 20140515
  Serious: Yes (Hospitalization)
  Sender: FDA-Public Use
  Company Number: None

PATIENT
  Age: 77 Year
  Sex: Male
  Weight: 102.3 kg

DRUGS (12)
  1. IBUPROFEN [Suspect]
     Indication: ARTHRITIS
     Dosage: 600MG  TID  PO?RECENT
     Route: 048
  2. ASA [Suspect]
     Indication: CORONARY ARTERY DISEASE
     Dosage: 81MG  QAM  PO?CHRONIC
     Route: 048
  3. NTG [Concomitant]
  4. KLOR-CON [Concomitant]
  5. SPIRONOLACTONE [Concomitant]
  6. MVI [Concomitant]
  7. LISINOPRIL [Concomitant]
  8. OMEPRAZOLE [Concomitant]
  9. TERAZOSIN [Concomitant]
  10. LASIX [Concomitant]
  11. MVI [Concomitant]
  12. DILTIAZEM [Concomitant]

REACTIONS (4)
  - Upper gastrointestinal haemorrhage [None]
  - Duodenal ulcer [None]
  - Haemorrhagic anaemia [None]
  - Renal failure acute [None]
